FAERS Safety Report 6204737-3 (Version None)
Quarter: 2009Q2

REPORT INFORMATION
  Report Type: 
  Country: None (occurrence: None)
  Receive Date: 20090527
  Receipt Date: 20090515
  Transmission Date: 20091009
  Serious: Yes (Hospitalization)
  Sender: FDA-Public Use
  Company Number: CH-PFIZER INC-2009214247

PATIENT

DRUGS (13)
  1. VFEND [Suspect]
     Indication: BRONCHOPULMONARY ASPERGILLOSIS
     Dosage: 100 MG, 2X/DAY
     Route: 048
  2. EVEROLIMUS [Interacting]
     Indication: LUNG TRANSPLANT
     Dosage: 0.75 MG, 2X/DAY
     Route: 048
     Dates: end: 20090421
  3. EVEROLIMUS [Interacting]
     Dosage: 0.25 MG, 1X/DAY
     Route: 048
     Dates: start: 20090425
  4. DAFALGAN [Concomitant]
     Dosage: 1 G, 4X/DAY
     Route: 048
  5. NEXIUM [Concomitant]
     Dosage: 40 MG, 1X/DAY
     Route: 048
  6. BACTRIM [Concomitant]
     Dosage: 800 MG, UNK
     Route: 048
  7. VALCYTE [Concomitant]
     Dosage: 450 MG, 2X/DAY
     Route: 048
  8. PREDNISONE [Concomitant]
     Dosage: 30 MG, 1X/DAY
     Route: 048
  9. COSOPT [Concomitant]
     Indication: GLAUCOMA
     Dosage: 1 GTT, 2X/DAY
     Route: 047
  10. CALCIMAGON-D3 [Concomitant]
     Dosage: 500 MG, 2X/DAY
     Route: 048
  11. MYCOPHENOLIC ACID [Concomitant]
     Dosage: 1 G, 2X/DAY
     Route: 048
     Dates: end: 20090421
  12. MYCOPHENOLIC ACID [Concomitant]
     Dosage: 1 G, 2X/DAY
     Route: 048
     Dates: start: 20090424
  13. PRAVASTATIN SODIUM [Concomitant]
     Dosage: 20 MG, 1X/DAY
     Route: 048

REACTIONS (5)
  - ABDOMINAL PAIN [None]
  - DIARRHOEA [None]
  - DRUG LEVEL INCREASED [None]
  - DRUG TOXICITY [None]
  - VOMITING [None]
